FAERS Safety Report 15755936 (Version 2)
Quarter: 2019Q1

REPORT INFORMATION
  Report Type: Spontaneous
  Country: US (occurrence: US)
  Receive Date: 20181224
  Receipt Date: 20190123
  Transmission Date: 20190417
  Serious: No
  Sender: FDA-Public Use
  Company Number: US-009507513-1812USA010650

PATIENT
  Age: 83 Year
  Sex: Male

DRUGS (6)
  1. METOPROLOL. [Concomitant]
     Active Substance: METOPROLOL
  2. BELSOMRA [Suspect]
     Active Substance: SUVOREXANT
     Indication: INSOMNIA
     Dosage: 10 MG TABLET IN HALF (5MG) EVERY NIGHT
     Route: 048
     Dates: start: 201811
  3. BELSOMRA [Suspect]
     Active Substance: SUVOREXANT
     Indication: INSOMNIA
     Dosage: 5 MILLIGRAM, QD
     Route: 048
     Dates: start: 2018, end: 201901
  4. BELSOMRA [Suspect]
     Active Substance: SUVOREXANT
     Dosage: 10 UNK
     Route: 048
     Dates: start: 201901
  5. OXAZEPAM. [Concomitant]
     Active Substance: OXAZEPAM
     Dosage: DOSE DECREASED FROM 20 MG TO 15 MG BEFORE BELSOMRA WAS STARTED.
  6. AMLODIPINE [Concomitant]
     Active Substance: AMLODIPINE BESYLATE

REACTIONS (7)
  - Wrong technique in product usage process [Unknown]
  - Feeling abnormal [Unknown]
  - Agitation [Unknown]
  - Arthralgia [Unknown]
  - Drug effect incomplete [Unknown]
  - Pain in extremity [Unknown]
  - Dizziness [Unknown]

NARRATIVE: CASE EVENT DATE: 201811
